FAERS Safety Report 9693531 (Version 2)
Quarter: 2014Q1

REPORT INFORMATION
  Report Type: Spontaneous
  Country: BR (occurrence: BR)
  Receive Date: 20131118
  Receipt Date: 20140206
  Transmission Date: 20141002
  Serious: Yes (Other)
  Sender: FDA-Public Use
  Company Number: BR-GLAXOSMITHKLINE-A1049894A

PATIENT
  Age: 2 Year
  Sex: Female
  Weight: 15.5 kg

DRUGS (2)
  1. FLIXOTIDE [Suspect]
     Indication: ASTHMA
     Dosage: 2PUFF PER DAY
     Route: 055
     Dates: start: 2011
  2. NASONEX [Concomitant]
     Dosage: 2SPR PER DAY
     Route: 055
     Dates: start: 2012

REACTIONS (4)
  - Asthmatic crisis [Recovered/Resolved]
  - Cystitis [Recovering/Resolving]
  - Drug ineffective [Recovered/Resolved]
  - Product quality issue [Unknown]
